FAERS Safety Report 6638633-4 (Version None)
Quarter: 2010Q1

REPORT INFORMATION
  Report Type: 
  Country: None (occurrence: None)
  Receive Date: 20100316
  Receipt Date: 20100316
  Transmission Date: 20100710
  Serious: No
  Sender: FDA-Public Use
  Company Number: None

PATIENT
  Sex: Female
  Weight: 113 kg

DRUGS (2)
  1. TAXOTERE [Suspect]
     Dosage: 170 MG
     Dates: end: 20100128
  2. HERCEPTIN [Suspect]
     Dosage: 885 MG
     Dates: end: 20100211

REACTIONS (2)
  - NEUTROPHIL COUNT ABNORMAL [None]
  - WHITE BLOOD CELL COUNT ABNORMAL [None]
